FAERS Safety Report 25065805 (Version 1)
Quarter: 2025Q1

REPORT INFORMATION
  Report Type: Spontaneous
  Country: US (occurrence: US)
  Receive Date: 20250311
  Receipt Date: 20250311
  Transmission Date: 20250408
  Serious: Yes (Other)
  Sender: BIOGEN
  Company Number: US-BIOGEN-2025BI01303503

PATIENT
  Sex: Female

DRUGS (1)
  1. TYSABRI [Suspect]
     Active Substance: NATALIZUMAB
     Indication: Multiple sclerosis
     Route: 050
     Dates: start: 20140929

REACTIONS (5)
  - Skin cancer [Unknown]
  - Multiple sclerosis [Unknown]
  - Tinnitus [Unknown]
  - Carotid arteriosclerosis [Unknown]
  - Product dose omission issue [Unknown]
